FAERS Safety Report 6654582-X (Version None)
Quarter: 2010Q1

REPORT INFORMATION
  Report Type: 
  Country: None (occurrence: None)
  Receive Date: 20100326
  Receipt Date: 20100316
  Transmission Date: 20100710
  Serious: Yes (Other)
  Sender: FDA-Public Use
  Company Number: US-PFIZER INC-2010034541

PATIENT
  Sex: Female

DRUGS (2)
  1. LYRICA [Suspect]
     Indication: NEURALGIA
     Dosage: 200 MG, 1X/DAY
     Route: 048
     Dates: start: 20070601
  2. LYRICA [Suspect]
     Indication: SPINAL CORD INJURY
     Dosage: UNK

REACTIONS (6)
  - BACK PAIN [None]
  - BURNING SENSATION [None]
  - MUSCLE SPASMS [None]
  - NERVOUS SYSTEM DISORDER [None]
  - PAIN IN EXTREMITY [None]
  - PARAESTHESIA [None]
